FAERS Safety Report 6239312-8 (Version None)
Quarter: 2009Q2

REPORT INFORMATION
  Report Type: 
  Country: None (occurrence: None)
  Receive Date: 20090618
  Receipt Date: 20090618
  Transmission Date: 20091009
  Serious: Yes (Other)
  Sender: FDA-Public Use
  Company Number: None

PATIENT
  Age: 30 Year
  Sex: Male
  Weight: 83.9154 kg

DRUGS (2)
  1. ZICAM MATRIXX INITIATIVES [Suspect]
     Indication: NASOPHARYNGITIS
     Dosage: 1 SWAB 4 HOURS NASAL
     Route: 045
     Dates: start: 20090101, end: 20090515
  2. ZICAM MATRIXX INITIATIVES [Suspect]
     Indication: PROPHYLAXIS
     Dosage: 1 SWAB 4 HOURS NASAL
     Route: 045
     Dates: start: 20090101, end: 20090515

REACTIONS (1)
  - ANOSMIA [None]
